FAERS Safety Report 25242801 (Version 2)
Quarter: 2025Q2

REPORT INFORMATION
  Report Type: Spontaneous
  Country: US (occurrence: US)
  Receive Date: 20250427
  Receipt Date: 20250502
  Transmission Date: 20250716
  Serious: Yes (Other)
  Sender: ABBVIE
  Company Number: US-ABBVIE-6245446

PATIENT
  Age: 85 Year
  Sex: Female
  Weight: 81 kg

DRUGS (2)
  1. DEPAKOTE [Suspect]
     Active Substance: DIVALPROEX SODIUM
     Indication: Product used for unknown indication
     Route: 048
     Dates: start: 20240812, end: 2025
  2. DEPAKOTE [Suspect]
     Active Substance: DIVALPROEX SODIUM
     Indication: Product used for unknown indication
     Route: 048
     Dates: start: 2025

REACTIONS (9)
  - Cerebrovascular accident [Unknown]
  - Product administration error [Unknown]
  - Fall [Unknown]
  - Weight bearing difficulty [Unknown]
  - Pain [Unknown]
  - Contusion [Unknown]
  - Dementia [Unknown]
  - Urinary tract infection [Unknown]
  - Product dispensing error [Unknown]

NARRATIVE: CASE EVENT DATE: 20250427
